FAERS Safety Report 4505392-0 (Version None)
Quarter: 2004Q4

REPORT INFORMATION
  Report Type: 
  Country: None (occurrence: None)
  Receive Date: 20041015
  Receipt Date: 20040615
  Transmission Date: 20050328
  Serious: Yes (Other)
  Sender: FDA-Public Use
  Company Number: 2004040268

PATIENT
  Sex: Male
  Weight: 76.2043 kg

DRUGS (5)
  1. NEURONTIN [Suspect]
     Indication: NEURALGIA
     Dosage: 1500 MG (2 IN 1 D), ORAL
     Route: 048
  2. CLONAZEPAM [Suspect]
     Indication: SOMNOLENCE
     Dosage: 3 MG (3 MG, 1 IN 1 D), ORAL
     Route: 048
  3. LEVOTHYROXINE SODIUM [Suspect]
     Indication: HYPOTHYROIDISM
     Dosage: ORAL
  4. LOVASTATIN [Concomitant]
  5. VITAMINS (VITAMINS) [Concomitant]

REACTIONS (10)
  - ABDOMINAL PAIN UPPER [None]
  - ATRIAL FIBRILLATION [None]
  - BLOOD PRESSURE INCREASED [None]
  - ERECTILE DYSFUNCTION [None]
  - HYPERTHYROIDISM [None]
  - INSOMNIA [None]
  - POLLAKIURIA [None]
  - PRURITUS [None]
  - RASH [None]
  - URINARY RETENTION [None]
